FAERS Safety Report 5652743-X (Version None)
Quarter: 2008Q1

REPORT INFORMATION
  Report Type: 
  Country: None (occurrence: None)
  Receive Date: 20080305
  Receipt Date: 20080305
  Transmission Date: 20080703
  Serious: Yes (Hospitalization)
  Sender: FDA-Public Use
  Company Number: None

PATIENT
  Sex: Male
  Weight: 92.3 kg

DRUGS (3)
  1. TEMOZOLOMIDE [Suspect]
     Dosage: 2310 MG
  2. COUMADIN [Concomitant]
  3. LOVENOX [Concomitant]

REACTIONS (12)
  - ACTIVITIES OF DAILY LIVING IMPAIRED [None]
  - ASTHENIA [None]
  - CEREBRAL HAEMORRHAGE [None]
  - COGNITIVE DISORDER [None]
  - DRUG TOXICITY [None]
  - FATIGUE [None]
  - GAIT DISTURBANCE [None]
  - GENERAL PHYSICAL HEALTH DETERIORATION [None]
  - OXYGEN SATURATION DECREASED [None]
  - PNEUMONIA [None]
  - PROCEDURAL SITE REACTION [None]
  - SUBDURAL HAEMATOMA [None]
